FAERS Safety Report 11216790 (Version 2)
Quarter: 2015Q3

REPORT INFORMATION
  Report Type: Report from Study
  Country: US (occurrence: US)
  Receive Date: 20150624
  Receipt Date: 20150729
  Transmission Date: 20151125
  Serious: Yes (Hospitalization)
  Sender: FDA-Public Use
  Company Number: US-TEVA-571540USA

PATIENT
  Age: 42 Year
  Sex: Female
  Weight: 91.9 kg

DRUGS (17)
  1. PACLITAXEL. [Suspect]
     Active Substance: PACLITAXEL
     Indication: TRIPLE NEGATIVE BREAST CANCER
     Route: 042
     Dates: start: 20141223, end: 20150407
  2. DOXYCYCLINE. [Concomitant]
     Active Substance: DOXYCYCLINE
     Indication: FOLLICULITIS
     Dosage: 200 MILLIGRAM DAILY; 100 MG, 1 IN 12 HR
     Route: 048
     Dates: start: 20150120, end: 20150128
  3. DIPHENHYDRAMINE. [Concomitant]
     Active Substance: DIPHENHYDRAMINE
     Indication: CHEMOTHERAPY
     Dosage: DAYS 1, 8 AND 15
     Route: 042
     Dates: start: 20141223
  4. BENZOYL PEROXIDE. [Concomitant]
     Active Substance: BENZOYL PEROXIDE
     Indication: FOLLICULITIS
     Dosage: 8%
     Route: 061
     Dates: start: 20150210
  5. FAMOTIDINE. [Concomitant]
     Active Substance: FAMOTIDINE
     Indication: CHEMOTHERAPY
     Dosage: DAYS 1, 8 AND 15
     Route: 042
     Dates: start: 20141223
  6. LORAZEPAM. [Concomitant]
     Active Substance: LORAZEPAM
     Indication: NAUSEA
     Dosage: AS REQUIRED
     Route: 048
     Dates: start: 20141227
  7. CARBOPLATIN (BLINDED) [Suspect]
     Active Substance: CARBOPLATIN
     Dosage: AUC, DAY 1 OF FOUR 21 DAY CYCLES
     Route: 042
     Dates: start: 20141223, end: 20150303
  8. ONDANSETRON [Concomitant]
     Active Substance: ONDANSETRON
     Indication: NAUSEA
     Dosage: AS REQUIRED
     Route: 048
     Dates: start: 20141227
  9. OMEPRAZOLE. [Concomitant]
     Active Substance: OMEPRAZOLE
     Indication: DYSPEPSIA
     Dosage: 80 MILLIGRAM DAILY;
     Route: 048
     Dates: start: 20150414
  10. DOXORUBICIN [Suspect]
     Active Substance: DOXORUBICIN
     Indication: TRIPLE NEGATIVE BREAST CANCER
     Dosage: DAY 1 OF 12 WEEKLY CYCLES, 1 IN 2 WEEKS
     Route: 042
     Dates: start: 20150423
  11. ABT-888 (BLINDED) [Suspect]
     Active Substance: VELIPARIB
     Route: 048
     Dates: start: 20141223, end: 20150413
  12. CYCLOPHOSPHAMIDE. [Suspect]
     Active Substance: CYCLOPHOSPHAMIDE
     Indication: TRIPLE NEGATIVE BREAST CANCER
     Dosage: 88.7143 MILLIGRAM DAILY;
     Dates: start: 20150423
  13. DEXAMETHASONE. [Concomitant]
     Active Substance: DEXAMETHASONE
     Indication: CHEMOTHERAPY
     Dosage: 12 HOURS AND 6 HOURS PRIOR TO CHEMOTHERAPY
     Route: 048
     Dates: start: 20141223
  14. KEFLEX [Concomitant]
     Active Substance: CEPHALEXIN
     Indication: FOLLICULITIS
     Dosage: 1500 MILLIGRAM DAILY; 500 MG, 1 IN 8 HR
     Route: 048
     Dates: start: 20150210
  15. RANITUDINE [Concomitant]
     Indication: CHEMOTHERAPY
     Route: 048
  16. DEXAMETHASONE. [Concomitant]
     Active Substance: DEXAMETHASONE
     Dosage: DAYS 1, 8 AND 5
     Route: 042
     Dates: start: 20141223
  17. PALONOSETRON [Concomitant]
     Active Substance: PALONOSETRON
     Indication: CHEMOTHERAPY
     Dosage: DAYS 1, 8 AND 15
     Route: 042
     Dates: start: 20141223

REACTIONS (1)
  - Febrile neutropenia [Recovered/Resolved]

NARRATIVE: CASE EVENT DATE: 20150521
